FAERS Safety Report 15145187 (Version 1)
Quarter: 2018Q3

REPORT INFORMATION
  Report Type: Spontaneous
  Country: US (occurrence: US)
  Receive Date: 20180713
  Receipt Date: 20180713
  Transmission Date: 20181010
  Serious: No
  Sender: FDA-Public Use
  Company Number: US-INTERCEPT-PMOCA2018000334

PATIENT

DRUGS (11)
  1. CHLORHEX [Concomitant]
  2. LIDOCAINE/PRILOCAINE [Concomitant]
     Active Substance: LIDOCAINE\PRILOCAINE
  3. ATORVASTATIN [Concomitant]
     Active Substance: ATORVASTATIN
  4. MAGNESIUM [Concomitant]
     Active Substance: MAGNESIUM
     Dosage: UNK
  5. AMLODIPINE [Concomitant]
     Active Substance: AMLODIPINE BESYLATE
  6. RENVELA [Concomitant]
     Active Substance: SEVELAMER CARBONATE
  7. RENA?VITE [Concomitant]
     Active Substance: ASCORBIC ACID\BIOTIN\CALCIUM PANTOTHENATE\CYANOCOBALAMIN\FOLIC ACID\NIACINAMIDE\PYRIDOXINE HYDROCHLORIDE\RIBOFLAVIN\THIAMINE MONONITRATE
  8. ALLOPURINOL. [Concomitant]
     Active Substance: ALLOPURINOL
  9. BUMETANIDE. [Concomitant]
     Active Substance: BUMETANIDE
  10. OCALIVA [Suspect]
     Active Substance: OBETICHOLIC ACID
     Indication: PRIMARY BILIARY CHOLANGITIS
     Dosage: 5 MG, QD
     Route: 048
     Dates: start: 201712
  11. OCALIVA [Suspect]
     Active Substance: OBETICHOLIC ACID
     Indication: HYPERTENSION

REACTIONS (3)
  - Drug dose omission [Unknown]
  - Oral pain [Not Recovered/Not Resolved]
  - Stomatitis [Unknown]

NARRATIVE: CASE EVENT DATE: 2018
